FAERS Safety Report 13460470 (Version 2)
Quarter: 2018Q1

REPORT INFORMATION
  Report Type: Spontaneous
  Country: US (occurrence: US)
  Receive Date: 20170420
  Receipt Date: 20180110
  Transmission Date: 20180508
  Serious: No
  Sender: FDA-Public Use
  Company Number: US-PFIZER INC-2017166231

PATIENT
  Age: 64 Year
  Sex: Female

DRUGS (1)
  1. IBRANCE [Suspect]
     Active Substance: PALBOCICLIB
     Indication: BREAST CANCER FEMALE
     Dosage: 100 MG, CYCLIC (DAILY FOR 21 DAYS OUT OF A 28 DAY CYCLE)
     Route: 048
     Dates: start: 201612

REACTIONS (4)
  - Dysuria [Unknown]
  - Skin irritation [Unknown]
  - Alopecia [Unknown]
  - Urinary tract infection [Unknown]
